FAERS Safety Report 4651452-3 (Version None)
Quarter: 2005Q2

REPORT INFORMATION
  Report Type: 
  Country: None (occurrence: None)
  Receive Date: 20050429
  Receipt Date: 20050418
  Transmission Date: 20051028
  Serious: Yes (Disabling)
  Sender: FDA-Public Use
  Company Number: GXKR2005BE00913

PATIENT
  Age: 80 Year
  Sex: Male

DRUGS (4)
  1. LISINOPRIL [Suspect]
     Indication: HYPERTENSION
     Dosage: 5 MG, QD, ORAL
     Route: 048
  2. DYTENZIDE (HYDROCHLOROTHIAZIDE, TRIAMTERENE) [Concomitant]
  3. OXYBUTYNIN CHLORIDE [Concomitant]
  4. TAMBOCOR [Concomitant]

REACTIONS (4)
  - ARRHYTHMIA [None]
  - DYSPEPSIA [None]
  - OEDEMA [None]
  - VARICOSE VEIN [None]
